FAERS Safety Report 4718950-5 (Version None)
Quarter: 2005Q3

REPORT INFORMATION
  Report Type: 
  Country: None (occurrence: None)
  Receive Date: 20050719
  Receipt Date: 20050707
  Transmission Date: 20060218
  Serious: Yes (Death)
  Sender: FDA-Public Use
  Company Number: AZAAU200500219

PATIENT
  Age: 80 Year
  Sex: Male

DRUGS (1)
  1. AZACITIDINE (AZACITIDINE) ( INJECTION) [Suspect]
     Indication: MYELODYSPLASTIC SYNDROME
     Dosage: 75 MG/M2 (148.5 MG, DAILY X 7 DAYS), SUBCUTANEOUS
     Route: 058
     Dates: start: 20050118, end: 20050124

REACTIONS (7)
  - ANAEMIA [None]
  - DYSPNOEA [None]
  - GENERAL PHYSICAL HEALTH DETERIORATION [None]
  - HYPOPERFUSION [None]
  - HYPOXIA [None]
  - NEUTROPENIA [None]
  - SEPSIS [None]
